FAERS Safety Report 10173623 (Version 1)
Quarter: 2014Q2

REPORT INFORMATION
  Report Type: Spontaneous
  Country: US (occurrence: None)
  Receive Date: 20140514
  Receipt Date: 20140514
  Transmission Date: 20141212
  Serious: No
  Sender: FDA-Public Use
  Company Number: None

PATIENT
  Age: 52 Year
  Sex: Male

DRUGS (1)
  1. KYNAMRO [Suspect]
     Indication: HYPERCHOLESTEROLAEMIA
     Dosage: 200 MG PFS, ONCE/WEEK SUB-Q
     Route: 058
     Dates: start: 20140321

REACTIONS (1)
  - Gastric infection [None]
